FAERS Safety Report 17423536 (Version 2)
Quarter: 2020Q1

REPORT INFORMATION
  Report Type: Spontaneous
  Country: JP (occurrence: JP)
  Receive Date: 20200217
  Receipt Date: 20200301
  Transmission Date: 20200409
  Serious: Yes (Death, Other)
  Sender: FDA-Public Use
  Company Number: JP-TAKEDA-2020TJP002504AA

PATIENT
  Age: 70 Year
  Sex: Female

DRUGS (1)
  1. NINLARO [Suspect]
     Active Substance: IXAZOMIB CITRATE
     Indication: PLASMA CELL MYELOMA
     Dosage: 3 MILLIGRAM
     Route: 048
     Dates: start: 20191017

REACTIONS (2)
  - Diarrhoea [Unknown]
  - Plasma cell myeloma [Fatal]

NARRATIVE: CASE EVENT DATE: 202001
